FAERS Safety Report 11295140 (Version 1)
Quarter: 2015Q3

REPORT INFORMATION
  Report Type: Other
  Country: TR (occurrence: TR)
  Receive Date: 20150723
  Receipt Date: 20150723
  Transmission Date: 20151125
  Serious: Yes (Hospitalization)
  Sender: FDA-Public Use
  Company Number: TR-LUPIN PHARMACEUTICALS INC.-2015-02165

PATIENT
  Age: 32 Year
  Sex: Male

DRUGS (11)
  1. QUETIAPINE [Suspect]
     Active Substance: QUETIAPINE
     Dosage: 600 MG
     Route: 065
     Dates: start: 2011, end: 2012
  2. LITHIUM. [Concomitant]
     Active Substance: LITHIUM
     Dosage: 1200 MG
     Route: 065
  3. OLANZAPINE. [Suspect]
     Active Substance: OLANZAPINE
     Indication: BIPOLAR DISORDER
     Dosage: 20 MG
     Route: 065
     Dates: start: 2004, end: 2012
  4. QUETIAPINE [Suspect]
     Active Substance: QUETIAPINE
     Indication: BIPOLAR DISORDER
     Dosage: 100-800 MG/DAY (BETWEEN 2001-2004)
     Route: 065
  5. LITHIUM. [Concomitant]
     Active Substance: LITHIUM
     Dosage: 1200 MG
     Route: 065
     Dates: start: 201209
  6. QUETIAPINE [Suspect]
     Active Substance: QUETIAPINE
     Dosage: 200 MG
     Route: 065
     Dates: start: 201209, end: 201301
  7. LITHIUM. [Concomitant]
     Active Substance: LITHIUM
     Indication: BIPOLAR DISORDER
     Dosage: 900 MG
     Route: 065
  8. LITHIUM. [Concomitant]
     Active Substance: LITHIUM
     Dosage: 1200 MG
     Route: 065
     Dates: start: 2009, end: 2009
  9. LITHIUM. [Concomitant]
     Active Substance: LITHIUM
     Dosage: 900 MG/DAY REGULAR THERAPY
     Route: 065
  10. QUETIAPINE [Suspect]
     Active Substance: QUETIAPINE
     Dosage: 600 MG
     Route: 065
     Dates: start: 2009, end: 2009
  11. OLANZAPINE. [Suspect]
     Active Substance: OLANZAPINE
     Dosage: 20 MG
     Route: 065
     Dates: start: 201209, end: 201301

REACTIONS (2)
  - Blepharospasm [Recovering/Resolving]
  - Meige^s syndrome [Recovering/Resolving]
